FAERS Safety Report 18279853 (Version 3)
Quarter: 2025Q3

REPORT INFORMATION
  Report Type: Spontaneous
  Country: EU (occurrence: EU)
  Receive Date: 20200918
  Receipt Date: 20250704
  Transmission Date: 20251021
  Serious: Yes (Life-Threatening, Hospitalization, Other)
  Sender: AUROBINDO
  Company Number: EU-UCBSA-2020035522

PATIENT
  Age: 38 Year
  Sex: Female

DRUGS (4)
  1. LEVETIRACETAM [Suspect]
     Active Substance: LEVETIRACETAM
     Indication: Seizure prophylaxis
     Dosage: 1 GRAM, 3 TIMES A DAY (3 G, ONCE A DAY)
     Route: 042
  2. DOMPERIDONE [Suspect]
     Active Substance: DOMPERIDONE
     Indication: Impaired gastric emptying
     Dosage: 10 MILLIGRAM, 3 TIMES A DAY (30 MG,ONCE A DAY)
     Route: 065
  3. LACOSAMIDE [Suspect]
     Active Substance: LACOSAMIDE
     Indication: Generalised tonic-clonic seizure
     Dosage: 400 MILLIGRAM, 3 TIMES A DAY (1200 MG, ONCE A DAY)
     Route: 042
  4. VALPROATE [Concomitant]
     Active Substance: VALPROIC ACID
     Indication: Generalised tonic-clonic seizure
     Dosage: 400 MILLIGRAM, 3 TIMES A DAY (1200MG,ONCE A DAY)
     Route: 042

REACTIONS (5)
  - Ventricular fibrillation [Recovered/Resolved]
  - Electrocardiogram QT prolonged [Recovered/Resolved]
  - Generalised tonic-clonic seizure [Unknown]
  - Prescribed overdose [Unknown]
  - Off label use [Unknown]
